FAERS Safety Report 21731664 (Version 1)
Quarter: 2022Q4

REPORT INFORMATION
  Report Type: Spontaneous
  Country: FR (occurrence: FR)
  Receive Date: 20221215
  Receipt Date: 20221215
  Transmission Date: 20230112
  Serious: Yes (Hospitalization, Other)
  Sender: FDA-Public Use
  Company Number: FR-AFSSAPS-PO20221934

PATIENT
  Age: 67 Year
  Sex: Male
  Weight: 63 kg

DRUGS (7)
  1. AMOXICILLIN [Suspect]
     Active Substance: AMOXICILLIN
     Indication: Tooth infection
     Dosage: 1G X 2 PER DAY
     Route: 048
     Dates: start: 20220626, end: 20220701
  2. FENOFIBRATE [Suspect]
     Active Substance: FENOFIBRATE
     Indication: Dyslipidaemia
     Route: 048
     Dates: start: 20220103, end: 20220706
  3. PANTOPRAZOLE [Suspect]
     Active Substance: PANTOPRAZOLE
     Indication: Gastritis
     Dosage: 40 MILLIGRAM, DAILY
     Route: 048
     Dates: start: 20220516, end: 20220706
  4. CLAVULANIC ACID [Suspect]
     Active Substance: CLAVULANIC ACID
     Indication: Tooth infection
     Dosage: 125MG X 2 PER DAY
     Route: 048
     Dates: start: 20220626, end: 20220701
  5. MOTILIUM [Suspect]
     Active Substance: DOMPERIDONE
     Indication: Gastritis
     Route: 048
     Dates: start: 20220613, end: 20220706
  6. SUCRALFATE [Suspect]
     Active Substance: SUCRALFATE
     Indication: Gastritis
     Dosage: 2 DOSAGE FORM, DAILY
     Route: 048
     Dates: start: 20220613, end: 20220706
  7. DAFALGAN CODEINE [Suspect]
     Active Substance: ACETAMINOPHEN\CODEINE PHOSPHATE
     Indication: Abdominal pain
     Route: 048
     Dates: start: 20220628, end: 20220706

REACTIONS (2)
  - Hepatitis cholestatic [Recovered/Resolved]
  - Hepatic cytolysis [Recovered/Resolved]

NARRATIVE: CASE EVENT DATE: 20220706
